FAERS Safety Report 8050983-6 (Version None)
Quarter: 2012Q1

REPORT INFORMATION
  Report Type: 
  Country: None (occurrence: None)
  Receive Date: 20120117
  Receipt Date: 20120110
  Transmission Date: 20120608
  Serious: Yes (Life-Threatening, Hospitalization)
  Sender: FDA-Public Use
  Company Number: PHHY2011AR23030

PATIENT
  Sex: Female

DRUGS (1)
  1. DIOVAN [Suspect]
     Indication: HYPERTENSION
     Dosage: 80 MG DAILY
     Dates: start: 20100909, end: 20110114

REACTIONS (4)
  - MEMORY IMPAIRMENT [None]
  - AMNESIA [None]
  - FEELING ABNORMAL [None]
  - CARDIAC DISORDER [None]
